FAERS Safety Report 4435878-9 (Version None)
Quarter: 2004Q3

REPORT INFORMATION
  Report Type: 
  Country: None (occurrence: None)
  Receive Date: 20040726
  Receipt Date: 20040303
  Transmission Date: 20050211
  Serious: No
  Sender: FDA-Public Use
  Company Number: USA031152702

PATIENT
  Age: 84 Year
  Sex: Female

DRUGS (2)
  1. FORTEO [Suspect]
     Indication: OSTEOPOROSIS
     Dosage: 20 UG/DAY
     Dates: start: 20031116
  2. MULTIVITAMIN [Concomitant]

REACTIONS (3)
  - ASTHENIA [None]
  - BONE PAIN [None]
  - INJECTION SITE ERYTHEMA [None]
